FAERS Safety Report 25119753 (Version 1)
Quarter: 2025Q1

REPORT INFORMATION
  Report Type: Spontaneous
  Country: RU (occurrence: RU)
  Receive Date: 20250325
  Receipt Date: 20250325
  Transmission Date: 20250408
  Serious: Yes (Death)
  Sender: MERCK SHARP & DOHME LLC
  Company Number: RU-009507513-2264923

PATIENT
  Age: 70 Year
  Sex: Male

DRUGS (4)
  1. KEYTRUDA [Suspect]
     Active Substance: PEMBROLIZUMAB
     Indication: Non-small cell lung cancer
     Dosage: ACTION TAKEN - WITHDRAWN
     Route: 041
     Dates: start: 20250218, end: 20250218
  2. PEMETREXED [Concomitant]
     Active Substance: PEMETREXED
     Dosage: 775 MG, ONCE EVERY 21 DAYS
     Route: 042
     Dates: start: 20250218, end: 20250218
  3. CARBOPLATIN [Concomitant]
     Active Substance: CARBOPLATIN
     Dosage: 363 MG, ONCE EVERY 21 DAYS,
     Route: 042
     Dates: start: 20250218, end: 20250218
  4. Noliprel A [Concomitant]
     Dosage: INDAPAMIDE + PERINDOPRIL (0.625+2.5) MG, ONCE DAILY
     Route: 048
     Dates: start: 20250210

REACTIONS (1)
  - Malignant neoplasm progression [Fatal]

NARRATIVE: CASE EVENT DATE: 20250101
